FAERS Safety Report 6898732-9 (Version None)
Quarter: 2010Q3

REPORT INFORMATION
  Report Type: 
  Country: None (occurrence: None)
  Receive Date: 20100802
  Receipt Date: 20071108
  Transmission Date: 20110219
  Serious: No
  Sender: FDA-Public Use
  Company Number: US-PFIZER INC-2007094834

PATIENT
  Sex: Male

DRUGS (3)
  1. LYRICA [Suspect]
  2. NEURONTIN [Suspect]
  3. DARVOCET [Concomitant]

REACTIONS (1)
  - DRUG INEFFECTIVE FOR UNAPPROVED INDICATION [None]
